FAERS Safety Report 4342647-7 (Version None)
Quarter: 2004Q2

REPORT INFORMATION
  Report Type: 
  Country: None (occurrence: None)
  Receive Date: 20040421
  Receipt Date: 20031210
  Transmission Date: 20050107
  Serious: Yes (Other)
  Sender: FDA-Public Use
  Company Number: 200314684FR

PATIENT
  Age: 67 Year
  Sex: Male

DRUGS (3)
  1. BIRODOGYL [Suspect]
     Indication: SKIN INFLAMMATION
     Route: 048
     Dates: start: 20031001, end: 20031001
  2. IMOVANE [Concomitant]
     Route: 048
  3. STRESAM [Concomitant]
     Route: 048

REACTIONS (10)
  - ANOREXIA [None]
  - ASTHENIA [None]
  - BRAIN NEOPLASM [None]
  - GAIT DISTURBANCE [None]
  - HEPATIC NEOPLASM [None]
  - METASTATIC NEOPLASM [None]
  - NUCLEAR MAGNETIC RESONANCE IMAGING BRAIN ABNORMAL [None]
  - SOMNOLENCE [None]
  - VERTIGO [None]
  - VISUAL DISTURBANCE [None]
